FAERS Safety Report 12192809 (Version 1)
Quarter: 2016Q1

REPORT INFORMATION
  Report Type: Spontaneous
  Country: US (occurrence: US)
  Receive Date: 20160318
  Receipt Date: 20160318
  Transmission Date: 20160526
  Serious: Yes (Hospitalization)
  Sender: FDA-Public Use
  Company Number: US-ACTELION-A-NJ2016-133023

PATIENT
  Age: 78 Year
  Sex: Female

DRUGS (12)
  1. SPIRONOLACTONE. [Concomitant]
     Active Substance: SPIRONOLACTONE
  2. TRAMADOL. [Concomitant]
     Active Substance: TRAMADOL
  3. METOLAZONE. [Concomitant]
     Active Substance: METOLAZONE
  4. SINGULAIR [Concomitant]
     Active Substance: MONTELUKAST SODIUM
  5. FOSAMAX [Concomitant]
     Active Substance: ALENDRONATE SODIUM
  6. FISH OIL [Concomitant]
     Active Substance: FISH OIL
  7. LASIX [Concomitant]
     Active Substance: FUROSEMIDE
  8. OMEPRAZOLE. [Concomitant]
     Active Substance: OMEPRAZOLE
  9. OPSUMIT [Suspect]
     Active Substance: MACITENTAN
     Indication: PULMONARY ARTERIAL HYPERTENSION
     Dosage: 10 MG, QD
     Route: 048
     Dates: start: 20140414
  10. GABAPENTIN. [Concomitant]
     Active Substance: GABAPENTIN
  11. COUMADIN [Concomitant]
     Active Substance: WARFARIN SODIUM
  12. ATENOLOL. [Concomitant]
     Active Substance: ATENOLOL

REACTIONS (1)
  - Septic shock [Recovered/Resolved]

NARRATIVE: CASE EVENT DATE: 20151214
